FAERS Safety Report 21406097 (Version 1)
Quarter: 2022Q4

REPORT INFORMATION
  Report Type: Spontaneous
  Country: CN (occurrence: None)
  Receive Date: 20221004
  Receipt Date: 20221004
  Transmission Date: 20230112
  Serious: Yes (Hospitalization)
  Sender: FDA-Public Use
  Company Number: CN-ROCHE-3191071

PATIENT
  Age: 33 Year
  Sex: Male
  Weight: 52 kg

DRUGS (6)
  1. AVASTIN [Suspect]
     Active Substance: BEVACIZUMAB
     Indication: Gastric cancer
     Route: 065
     Dates: start: 2022
  2. AVASTIN [Suspect]
     Active Substance: BEVACIZUMAB
     Route: 041
     Dates: start: 20220814
  3. CAPECITABINE [Suspect]
     Active Substance: CAPECITABINE
     Indication: Gastric cancer
     Route: 048
     Dates: start: 2022
  4. CAPECITABINE [Suspect]
     Active Substance: CAPECITABINE
     Route: 048
     Dates: start: 20220814
  5. OXALIPLATIN [Suspect]
     Active Substance: OXALIPLATIN
     Indication: Gastric cancer
     Route: 065
     Dates: start: 2022
  6. OXALIPLATIN [Suspect]
     Active Substance: OXALIPLATIN
     Route: 041
     Dates: start: 20220814

REACTIONS (1)
  - Hepatic function abnormal [Recovering/Resolving]

NARRATIVE: CASE EVENT DATE: 20220101
